FAERS Safety Report 7888327 (Version 14)
Quarter: 2013Q2

REPORT INFORMATION
  Report Type: Spontaneous
  Country: US (occurrence: US)
  Receive Date: 20110407
  Receipt Date: 20130520
  Transmission Date: 20140414
  Serious: Yes (Hospitalization, Other)
  Sender: FDA-Public Use
  Company Number: US-BIOGENIDEC-2011BI011795

PATIENT
  Age: 30 Year
  Sex: Male

DRUGS (10)
  1. TYSABRI [Suspect]
     Indication: CROHN^S DISEASE
     Route: 042
     Dates: start: 20080515, end: 20110309
  2. CIPROFLOXACIN [Concomitant]
  3. ENTOCORT [Concomitant]
     Indication: CROHN^S DISEASE
     Route: 048
  4. XIFAXAN [Concomitant]
     Indication: CROHN^S DISEASE
     Route: 048
  5. PENTASA [Concomitant]
     Route: 048
  6. COLESTIPOL HYDROCHLORIDE [Concomitant]
     Route: 048
  7. HYDROCORTISONE [Concomitant]
  8. LOPERAMIDE HYDROCHLORIDE [Concomitant]
  9. ANTIBIOTICS [Concomitant]
  10. 5-ASA [Concomitant]
     Indication: CROHN^S DISEASE

REACTIONS (3)
  - Progressive multifocal leukoencephalopathy [Recovered/Resolved]
  - Immune reconstitution inflammatory syndrome [Recovered/Resolved]
  - Gastrointestinal disorder [Not Recovered/Not Resolved]
